FAERS Safety Report 6905402-7 (Version None)
Quarter: 2010Q3

REPORT INFORMATION
  Report Type: 
  Country: None (occurrence: None)
  Receive Date: 20100802
  Receipt Date: 20100727
  Transmission Date: 20110219
  Serious: Yes (Death, Hospitalization)
  Sender: FDA-Public Use
  Company Number: 2010US002177

PATIENT
  Age: 62 Year
  Sex: Male

DRUGS (3)
  1. PROGRAF [Suspect]
     Indication: LUNG TRANSPLANT
     Dosage: 2 MG, UID/QD
     Dates: start: 20090914, end: 20100610
  2. CELLCEPT [Concomitant]
  3. PREDNISONE [Concomitant]

REACTIONS (3)
  - CARDIAC ARREST [None]
  - COLITIS [None]
  - SEPSIS [None]
